FAERS Safety Report 6155986-4 (Version None)
Quarter: 2009Q2

REPORT INFORMATION
  Report Type: 
  Country: None (occurrence: None)
  Receive Date: 20090410
  Receipt Date: 20090410
  Transmission Date: 20091009
  Serious: No
  Sender: FDA-Public Use
  Company Number: None

PATIENT
  Age: 48 Year
  Sex: Female
  Weight: 56.6996 kg

DRUGS (1)
  1. PRILOSEC [Suspect]
     Indication: GASTRITIS
     Dosage: 20 MG OMAPRAZOLE BID PO
     Route: 048
     Dates: start: 20090220, end: 20090408

REACTIONS (2)
  - RASH PAPULAR [None]
  - RASH PRURITIC [None]
